FAERS Safety Report 8029182-X (Version None)
Quarter: 2012Q1

REPORT INFORMATION
  Report Type: 
  Country: None (occurrence: None)
  Receive Date: 20120106
  Receipt Date: 20120103
  Transmission Date: 20120608
  Serious: Yes (Death)
  Sender: FDA-Public Use
  Company Number: PHHY2011TW79025

PATIENT
  Sex: Male
  Weight: 48.9 kg

DRUGS (1)
  1. TASIGNA [Suspect]
     Indication: CHRONIC MYELOID LEUKAEMIA
     Dosage: 400 MG, BID
     Route: 048
     Dates: start: 20101008, end: 20101112

REACTIONS (5)
  - BACTERAEMIA [None]
  - MULTI-ORGAN FAILURE [None]
  - PNEUMONIA [None]
  - FEBRILE NEUTROPENIA [None]
  - RESPIRATORY FAILURE [None]
